FAERS Safety Report 15664667 (Version 2)
Quarter: 2018Q4

REPORT INFORMATION
  Report Type: Spontaneous
  Country: IT (occurrence: IT)
  Receive Date: 20181128
  Receipt Date: 20181201
  Transmission Date: 20190205
  Serious: Yes (Hospitalization)
  Sender: FDA-Public Use
  Company Number: IT-ACCORD-094007

PATIENT
  Age: 70 Year
  Sex: Male

DRUGS (5)
  1. FLUOROURACIL. [Suspect]
     Active Substance: FLUOROURACIL
     Indication: COLON CANCER
     Route: 042
  2. DEXAMETHASONE. [Concomitant]
     Active Substance: DEXAMETHASONE
  3. SIMVASTATIN. [Concomitant]
     Active Substance: SIMVASTATIN
     Route: 042
  4. IRINOTECAN ACCORD [Concomitant]
     Active Substance: IRINOTECAN
  5. ONDANSETRON [Concomitant]
     Active Substance: ONDANSETRON

REACTIONS (6)
  - Oedema [Unknown]
  - Tachycardia [Unknown]
  - Insomnia [Unknown]
  - Lacrimation increased [Unknown]
  - Erythema [Unknown]
  - Agitation [Unknown]

NARRATIVE: CASE EVENT DATE: 20180101
